FAERS Safety Report 5886793-5 (Version None)
Quarter: 2008Q3

REPORT INFORMATION
  Report Type: 
  Country: None (occurrence: None)
  Receive Date: 20080917
  Receipt Date: 20080909
  Transmission Date: 20090109
  Serious: Yes (Hospitalization)
  Sender: FDA-Public Use
  Company Number: US-AMGEN-US306696

PATIENT
  Age: 54 Year
  Sex: Male
  Weight: 66.7 kg

DRUGS (13)
  1. PANITUMUMAB [Suspect]
     Indication: SQUAMOUS CELL CARCINOMA
     Dates: start: 20080715
  2. CARBOPLATIN [Suspect]
     Dates: start: 20080715, end: 20080812
  3. TAXOL [Suspect]
     Dates: start: 20080715, end: 20080812
  4. ACYCLOVIR [Concomitant]
  5. ATIVAN [Concomitant]
  6. CHLORHEXIDINE GLUCONATE [Concomitant]
  7. COLACE [Concomitant]
  8. COMPAZINE [Concomitant]
  9. DECADRON SRC [Concomitant]
  10. DIFLUCAN [Concomitant]
  11. CISPLATIN [Concomitant]
  12. FLUOROURACIL [Concomitant]
  13. TAXOTERE [Concomitant]

REACTIONS (2)
  - ABSCESS INTESTINAL [None]
  - DIVERTICULITIS [None]
